FAERS Safety Report 23435239 (Version 5)
Quarter: 2024Q2

REPORT INFORMATION
  Report Type: Spontaneous
  Country: JP (occurrence: JP)
  Receive Date: 20240123
  Receipt Date: 20240523
  Transmission Date: 20240716
  Serious: Yes (Hospitalization)
  Sender: FDA-Public Use
  Company Number: JP-NBI-BJ202318876

PATIENT
  Age: 87 Year
  Sex: Female

DRUGS (1)
  1. OFEV [Suspect]
     Active Substance: NINTEDANIB
     Indication: Interstitial lung disease
     Route: 048
     Dates: start: 20231014

REACTIONS (23)
  - Pneumonia [Recovered/Resolved]
  - Pharyngitis [Recovered/Resolved]
  - Nasopharyngitis [Recovered/Resolved]
  - White blood cell count increased [Recovering/Resolving]
  - Diarrhoea [Recovered/Resolved]
  - Vomiting [Recovered/Resolved]
  - Physical deconditioning [Not Recovered/Not Resolved]
  - Nasopharyngitis [Not Recovered/Not Resolved]
  - Cough [Recovering/Resolving]
  - Productive cough [Recovering/Resolving]
  - Pyrexia [Recovered/Resolved]
  - Palpitations [Recovering/Resolving]
  - Abdominal discomfort [Not Recovered/Not Resolved]
  - Oropharyngeal pain [Recovered/Resolved]
  - Nasal dryness [Recovered/Resolved]
  - Decreased appetite [Recovering/Resolving]
  - Weight decreased [Recovered/Resolved]
  - Weight fluctuation [Not Recovered/Not Resolved]
  - Pyrexia [Not Recovered/Not Resolved]
  - Chest discomfort [Not Recovered/Not Resolved]
  - Adhesion [Not Recovered/Not Resolved]
  - Fall [Recovered/Resolved]
  - Neurosis [Not Recovered/Not Resolved]

NARRATIVE: CASE EVENT DATE: 20231102
